FAERS Safety Report 9138037 (Version 1)
Quarter: 2013Q1

REPORT INFORMATION
  Report Type: Spontaneous
  Country: HR (occurrence: HR)
  Receive Date: 20130304
  Receipt Date: 20130304
  Transmission Date: 20140127
  Serious: Yes (Other)
  Sender: FDA-Public Use
  Company Number: HR-ASTRAZENECA-2013SE12696

PATIENT
  Age: 55 Year
  Sex: Female

DRUGS (5)
  1. CRESTOR [Suspect]
     Indication: TYPE V HYPERLIPIDAEMIA
     Route: 048
     Dates: start: 20120310
  2. CALCIUM CARBONATE KRKA [Concomitant]
     Indication: OSTEOPOROSIS POSTMENOPAUSAL
     Route: 048
  3. PLIVIT D3 [Concomitant]
     Indication: OSTEOPOROSIS POSTMENOPAUSAL
     Dosage: 500 IU, EVERY DAY, LIQUIDS, DROPS
     Route: 048
  4. TRITAZIDE [Concomitant]
     Indication: ESSENTIAL HYPERTENSION
     Dosage: 1 DF= 5 MG + 25 MG
     Route: 048
  5. CONTROLOC [Concomitant]
     Indication: GASTRITIS
     Route: 048

REACTIONS (2)
  - Myalgia [Not Recovered/Not Resolved]
  - Muscle spasms [Not Recovered/Not Resolved]
